FAERS Safety Report 5820166-6 (Version None)
Quarter: 2008Q3

REPORT INFORMATION
  Report Type: 
  Country: None (occurrence: None)
  Receive Date: 20080724
  Receipt Date: 20080716
  Transmission Date: 20090109
  Serious: No
  Sender: FDA-Public Use
  Company Number: JP-BRISTOL-MYERS SQUIBB COMPANY-14243745

PATIENT
  Age: 58 Year
  Sex: Female

DRUGS (9)
  1. BARACLUDE [Suspect]
     Indication: HEPATITIS B
     Route: 048
     Dates: start: 20080602
  2. LANSOPRAZOLE + AMOXICILLIN + CLARITHROMYCIN [Suspect]
     Route: 048
     Dates: start: 20080619, end: 20080625
  3. URSO 250 [Suspect]
     Indication: HEPATITIS B
     Route: 048
     Dates: start: 20080615
  4. GASTER D [Suspect]
     Route: 048
     Dates: start: 20080516
  5. TAKEPRON [Suspect]
     Route: 048
     Dates: start: 20080619, end: 20080625
  6. AMOLIN [Suspect]
     Route: 048
     Dates: start: 20080619, end: 20080625
  7. CLARITHROMYCIN [Suspect]
     Route: 048
     Dates: start: 20080619, end: 20080625
  8. URSODIOL [Suspect]
     Route: 048
     Dates: end: 20080615
  9. ENTERONON-R [Suspect]
     Route: 048
     Dates: start: 20080619, end: 20080625

REACTIONS (1)
  - NEUTROPENIA [None]
